FAERS Safety Report 5874599-2 (Version None)
Quarter: 2008Q3

REPORT INFORMATION
  Report Type: 
  Country: None (occurrence: None)
  Receive Date: 20080905
  Receipt Date: 20080905
  Transmission Date: 20090109
  Serious: Yes (Hospitalization)
  Sender: FDA-Public Use
  Company Number: None

PATIENT
  Age: 52 Year
  Sex: Male
  Weight: 110 kg

DRUGS (1)
  1. SORAFENIB, 200MG TAB, BAYER [Suspect]
     Indication: RENAL CELL CARCINOMA
     Dosage: 600 MG BID X 20 DAYS PO
     Route: 048
     Dates: start: 20080821

REACTIONS (4)
  - CHEST PAIN [None]
  - COSTOCHONDRITIS [None]
  - METASTASES TO BONE [None]
  - MYALGIA [None]
